FAERS Safety Report 5807091-1 (Version None)
Quarter: 2008Q3

REPORT INFORMATION
  Report Type: 
  Country: None (occurrence: None)
  Receive Date: 20080711
  Receipt Date: 20080222
  Transmission Date: 20090109
  Serious: Yes (Hospitalization)
  Sender: FDA-Public Use
  Company Number: FR-NOVOPROD-277209

PATIENT
  Age: 60 Year
  Sex: Male

DRUGS (15)
  1. LEVEMIR [Suspect]
     Dosage: 22 IU, QD
  2. SKENAN [Concomitant]
     Dosage: 30 MG, BID
     Route: 048
     Dates: start: 20070727
  3. MIOREL [Concomitant]
     Dosage: 4 MG, 3
     Route: 048
     Dates: start: 20070730, end: 20070801
  4. KARDEGIC                           /00002703/ [Concomitant]
     Dosage: 75 MG, UNK
     Route: 048
  5. PLAVIX [Concomitant]
     Dosage: 75 MG, UNK
     Route: 048
  6. TRIATEC                            /00116401/ [Concomitant]
     Dosage: 10 MG, UNK
     Route: 048
  7. BISOPROLOL FUMARATE [Concomitant]
     Dosage: 1.25 MG, UNK
     Route: 048
  8. LASIX [Concomitant]
     Dosage: 40 MG, UNK
     Route: 048
  9. GLUCOPHAGE [Concomitant]
     Dosage: 850 MG, UNK
     Route: 048
  10. TAHOR [Concomitant]
     Dosage: 10 MG, UNK
     Route: 048
  11. SPIRIVA [Concomitant]
     Dosage: 18 UG, UNK
  12. SYMBICORT [Concomitant]
     Dosage: 400 UG, UNK
     Route: 048
  13. NORSET [Concomitant]
     Dosage: 15 MG, 1 TWICE/DAY
  14. AMARYL [Concomitant]
     Dosage: 2 MG, UNK
     Route: 048
  15. CORDARONE [Concomitant]
     Dosage: 200 MG, UNK
     Route: 048

REACTIONS (1)
  - URINARY RETENTION [None]
